FAERS Safety Report 20499598 (Version 1)
Quarter: 2022Q1

REPORT INFORMATION
  Report Type: Report from Study
  Country: US (occurrence: US)
  Receive Date: 20220222
  Receipt Date: 20220222
  Transmission Date: 20220423
  Serious: No
  Sender: FDA-Public Use
  Company Number: US-NOVARTISTESTPH-NVSC2022US038125

PATIENT
  Sex: Female

DRUGS (1)
  1. PROMACTA [Suspect]
     Active Substance: ELTROMBOPAG OLAMINE
     Indication: Malignant melanoma
     Dosage: 25 MG  (TAKE 1 TABLET (25MG) BY MOUTH EVERY MORNING ON AN EMPTY STOMACH, AT LEAST 1HR BEFORE OR 2HRS
     Route: 048
     Dates: start: 20211027

REACTIONS (5)
  - Headache [Unknown]
  - Urticaria [Unknown]
  - Platelet count decreased [Unknown]
  - Contusion [Unknown]
  - Product use in unapproved indication [Unknown]
